FAERS Safety Report 23547266 (Version 4)
Quarter: 2024Q2

REPORT INFORMATION
  Report Type: Report from Study
  Country: CA (occurrence: CA)
  Receive Date: 20240221
  Receipt Date: 20240416
  Transmission Date: 20240715
  Serious: Yes (Other)
  Sender: FDA-Public Use
  Company Number: CA-SAMSUNG BIOEPIS-SB-2024-04996

PATIENT
  Age: 7 Year
  Sex: Female

DRUGS (1)
  1. RENFLEXIS [Suspect]
     Active Substance: INFLIXIMAB-ABDA
     Indication: Colitis ulcerative
     Route: 042
     Dates: start: 20240123

REACTIONS (12)
  - Choking [Unknown]
  - Fatigue [Unknown]
  - Urticaria [Unknown]
  - Nausea [Unknown]
  - Erythema [Unknown]
  - Headache [Unknown]
  - Cough [Not Recovered/Not Resolved]
  - Product administration error [Unknown]
  - Productive cough [Not Recovered/Not Resolved]
  - Viral infection [Unknown]
  - Dyspnoea [Unknown]
  - Product use issue [Unknown]

NARRATIVE: CASE EVENT DATE: 20240123
